FAERS Safety Report 4398340-8 (Version None)
Quarter: 2004Q3

REPORT INFORMATION
  Report Type: 
  Country: None (occurrence: None)
  Receive Date: 20040714
  Receipt Date: 20040714
  Transmission Date: 20050211
  Serious: Yes (Hospitalization)
  Sender: FDA-Public Use
  Company Number: None

PATIENT
  Age: 24 Year
  Sex: Male
  Weight: 29.5 kg

DRUGS (3)
  1. PHENYTOIN [Suspect]
     Indication: CONVULSION
     Dosage: CHRONIC
  2. KEPPRA [Concomitant]
  3. VALIUM [Concomitant]

REACTIONS (4)
  - DRUG LEVEL INCREASED [None]
  - HYPOTHERMIA [None]
  - MARKEDLY REDUCED DIETARY INTAKE [None]
  - MENTAL IMPAIRMENT [None]
